FAERS Safety Report 16320383 (Version 1)
Quarter: 2019Q2

REPORT INFORMATION
  Report Type: Spontaneous
  Country: ES (occurrence: ES)
  Receive Date: 20190516
  Receipt Date: 20190516
  Transmission Date: 20190711
  Serious: Yes (Death, Hospitalization)
  Sender: FDA-Public Use
  Company Number: ES-PFIZER INC-2019206987

PATIENT
  Age: 67 Year
  Sex: Male

DRUGS (5)
  1. INMUNOGLOBULINA HUMANA (IMMUNOGLOBULIN G HUMAN) [Interacting]
     Active Substance: HUMAN IMMUNOGLOBULIN G
     Indication: RENAL TRANSPLANT
     Dosage: 90 MG, 1X/DAY
     Route: 042
     Dates: start: 20181127, end: 20181202
  2. METHYLPREDNISOLONE SODIUM SUCCINATE. [Suspect]
     Active Substance: METHYLPREDNISOLONE SODIUM SUCCINATE
     Indication: RENAL TRANSPLANT
     Dosage: 20 MG, 1X/DAY
     Route: 042
     Dates: start: 20181129, end: 20181202
  3. MYCOPHENOLATE MOFETIL. [Interacting]
     Active Substance: MYCOPHENOLATE MOFETIL
     Indication: RENAL TRANSPLANT
     Dosage: 750 MG, 2X/DAY (EVERY 12 HOURS)
     Route: 048
     Dates: start: 20181127, end: 20181202
  4. METHYLPREDNISOLONE. [Concomitant]
     Active Substance: METHYLPREDNISOLONE
     Indication: RENAL TRANSPLANT
     Dosage: 250 MG, 1X/DAY
     Route: 042
     Dates: start: 20181127, end: 20181129
  5. TACROLIMUS. [Interacting]
     Active Substance: TACROLIMUS
     Indication: RENAL TRANSPLANT
     Dosage: 12 MG, 1X/DAY
     Route: 048
     Dates: start: 20181127, end: 20181202

REACTIONS (2)
  - Drug interaction [Unknown]
  - Klebsiella sepsis [Fatal]

NARRATIVE: CASE EVENT DATE: 201811
